FAERS Safety Report 9492231 (Version 2)
Quarter: 2013Q3

REPORT INFORMATION
  Report Type: Spontaneous
  Country: NL (occurrence: NL)
  Receive Date: 20130830
  Receipt Date: 20130909
  Transmission Date: 20140515
  Serious: Yes (Hospitalization, Other)
  Sender: FDA-Public Use
  Company Number: NL-ABBOTT-13P-114-1138248-00

PATIENT
  Age: 72 Year
  Sex: Female
  Weight: 51 kg

DRUGS (6)
  1. HUMIRA [Suspect]
     Indication: RHEUMATOID ARTHRITIS
     Route: 058
     Dates: start: 20080810, end: 20130808
  2. PANADOL [Concomitant]
     Indication: OSTEOARTHRITIS
  3. ARAVA [Concomitant]
     Indication: PRODUCT USED FOR UNKNOWN INDICATION
  4. FOSAMAX [Concomitant]
     Indication: PRODUCT USED FOR UNKNOWN INDICATION
  5. ACETOSAL [Concomitant]
     Indication: PRODUCT USED FOR UNKNOWN INDICATION
  6. BISPROLOL COMP [Concomitant]
     Indication: PRODUCT USED FOR UNKNOWN INDICATION

REACTIONS (3)
  - Coma [Not Recovered/Not Resolved]
  - Demyelination [Not Recovered/Not Resolved]
  - Motor dysfunction [Not Recovered/Not Resolved]
